FAERS Safety Report 22019297 (Version 2)
Quarter: 2023Q4

REPORT INFORMATION
  Report Type: Report from Study
  Country: US (occurrence: US)
  Receive Date: 20230222
  Receipt Date: 20231025
  Transmission Date: 20240110
  Serious: No
  Sender: FDA-Public Use
  Company Number: US-BEIGENE USA INC-BGN-2023-001242

PATIENT

DRUGS (3)
  1. BRUKINSA [Suspect]
     Active Substance: ZANUBRUTINIB
     Indication: Lymphoplasmacytoid lymphoma/immunocytoma
     Dosage: 80 MILLIGRAM, BID
     Route: 048
  2. BRUKINSA [Suspect]
     Active Substance: ZANUBRUTINIB
     Indication: Waldenstrom^s macroglobulinaemia
     Dosage: 160 MILLIGRAM, QD
     Route: 048
     Dates: start: 20230113
  3. BRUKINSA [Suspect]
     Active Substance: ZANUBRUTINIB
     Dosage: 160 MILLIGRAM, QD
     Route: 048
     Dates: start: 20230113

REACTIONS (4)
  - Contusion [Unknown]
  - Product dose omission issue [Unknown]
  - Off label use [Unknown]
  - Product distribution issue [Unknown]

NARRATIVE: CASE EVENT DATE: 20230211
